FAERS Safety Report 8384344-7 (Version None)
Quarter: 2012Q2

REPORT INFORMATION
  Report Type: 
  Country: None (occurrence: None)
  Receive Date: 20120524
  Receipt Date: 20120514
  Transmission Date: 20120825
  Serious: Yes (Hospitalization, Other)
  Sender: FDA-Public Use
  Company Number: US-ELI_LILLY_AND_COMPANY-US201111001475

PATIENT
  Sex: Male

DRUGS (7)
  1. FORTEO [Suspect]
     Dosage: 20 UG, QD
     Route: 065
  2. FORTEO [Suspect]
     Indication: OSTEOPOROSIS
     Dosage: 20 UG, QD
     Route: 065
     Dates: start: 20111101
  3. FORTEO [Suspect]
     Dosage: 20 UG, QD
     Route: 065
  4. FORTEO [Suspect]
     Dosage: 20 UG, QD
     Route: 065
  5. FORTEO [Suspect]
     Dosage: 20 UG, QD
     Route: 065
  6. FORTEO [Suspect]
     Dosage: 20 UG, QD
     Route: 065
  7. FORTEO [Suspect]
     Dosage: 20 UG, QD
     Route: 065

REACTIONS (16)
  - BALANCE DISORDER [None]
  - GAIT DISTURBANCE [None]
  - TRANSIENT ISCHAEMIC ATTACK [None]
  - LIMB INJURY [None]
  - ANXIETY [None]
  - PAIN IN EXTREMITY [None]
  - INJECTION SITE HAEMATOMA [None]
  - HEADACHE [None]
  - LOWER LIMB FRACTURE [None]
  - HIP FRACTURE [None]
  - PAIN [None]
  - ARTHRALGIA [None]
  - MEMORY IMPAIRMENT [None]
  - DISORIENTATION [None]
  - FALL [None]
  - HEAD INJURY [None]
